FAERS Safety Report 4352785-0 (Version None)
Quarter: 2004Q2

REPORT INFORMATION
  Report Type: 
  Country: None (occurrence: None)
  Receive Date: 20040429
  Receipt Date: 20040416
  Transmission Date: 20050107
  Serious: Yes (Death)
  Sender: FDA-Public Use
  Company Number: 2004025563

PATIENT
  Age: 40 Year
  Sex: Female

DRUGS (3)
  1. ZOLOFT [Suspect]
     Indication: ILL-DEFINED DISORDER
  2. METHADONE (METHADONE) [Suspect]
     Indication: ILL-DEFINED DISORDER
     Dosage: 100 MG
     Dates: end: 20030428
  3. ALPRAZOLAM [Suspect]
     Indication: ILL-DEFINED DISORDER

REACTIONS (3)
  - DRUG LEVEL INCREASED [None]
  - INTENTIONAL OVERDOSE [None]
  - MURDER [None]
